FAERS Safety Report 7506258-4 (Version None)
Quarter: 2011Q2

REPORT INFORMATION
  Report Type: 
  Country: None (occurrence: None)
  Receive Date: 20110526
  Receipt Date: 20110520
  Transmission Date: 20111010
  Serious: Yes (Death, Hospitalization)
  Sender: FDA-Public Use
  Company Number: PHHY2011US12066

PATIENT
  Sex: Female
  Weight: 79 kg

DRUGS (6)
  1. ZOMETA [Suspect]
     Dosage: 4MG/5ML
  2. GEMCITABINE [Concomitant]
     Dosage: UNK
  3. HYDROCODONE BITARTRATE [Concomitant]
  4. LOVENOX [Concomitant]
  5. IMODIUM [Concomitant]
  6. LASIX [Concomitant]

REACTIONS (13)
  - DISEASE PROGRESSION [None]
  - HYPOALBUMINAEMIA [None]
  - MALIGNANT ASCITES [None]
  - HAEMATOCHEZIA [None]
  - DIARRHOEA [None]
  - HYPOCOAGULABLE STATE [None]
  - NEOPLASM MALIGNANT [None]
  - METASTASES TO LIVER [None]
  - PETECHIAE [None]
  - GASTROINTESTINAL HAEMORRHAGE [None]
  - HEPATIC FAILURE [None]
  - DISSEMINATED INTRAVASCULAR COAGULATION [None]
  - METABOLIC ACIDOSIS [None]
